FAERS Safety Report 5591064-0 (Version None)
Quarter: 2008Q1

REPORT INFORMATION
  Report Type: 
  Country: None (occurrence: None)
  Receive Date: 20080115
  Receipt Date: 20080110
  Transmission Date: 20080703
  Serious: Yes (Death)
  Sender: FDA-Public Use
  Company Number: PHNU2008DE00523

PATIENT
  Sex: Female

DRUGS (3)
  1. SANDIMMUNE [Suspect]
     Indication: LUNG TRANSPLANT
     Route: 065
     Dates: start: 20071101
  2. CELLCEPT [Concomitant]
     Indication: LUNG TRANSPLANT
     Dates: start: 20071101
  3. PREDNISOLONE [Concomitant]
     Indication: LUNG TRANSPLANT
     Dates: start: 20071101

REACTIONS (1)
  - RHABDOMYOLYSIS [None]
